FAERS Safety Report 19792397 (Version 3)
Quarter: 2021Q3

REPORT INFORMATION
  Report Type: Spontaneous
  Country: US (occurrence: US)
  Receive Date: 20210906
  Receipt Date: 20210927
  Transmission Date: 20211014
  Serious: No
  Sender: FDA-Public Use
  Company Number: US-ORGANON-O2109USA000020

PATIENT
  Age: 26 Year
  Sex: Female
  Weight: 49.89 kg

DRUGS (1)
  1. NEXPLANON [Suspect]
     Active Substance: ETONOGESTREL
     Dosage: 1 IMPLANT OF 68 MG, LEFT UPPER ARM
     Route: 058
     Dates: start: 20210830, end: 20210830

REACTIONS (2)
  - Product quality issue [Unknown]
  - Complication of device insertion [Recovered/Resolved]

NARRATIVE: CASE EVENT DATE: 20210830
